FAERS Safety Report 8267744-5 (Version None)
Quarter: 2012Q2

REPORT INFORMATION
  Report Type: 
  Country: None (occurrence: None)
  Receive Date: 20120409
  Receipt Date: 20120322
  Transmission Date: 20120825
  Serious: Yes (Hospitalization)
  Sender: FDA-Public Use
  Company Number: US-BAYER-2012-007478

PATIENT
  Age: 44 Year
  Sex: Female
  Weight: 78 kg

DRUGS (5)
  1. NEXIUM [Concomitant]
  2. LIPITOR [Concomitant]
     Dosage: UNK
     Route: 048
     Dates: start: 20070401
  3. YASMIN [Suspect]
     Indication: MENORRHAGIA
     Dosage: UNK
     Route: 048
     Dates: start: 20060616, end: 20070404
  4. IBUPROFEN [Concomitant]
     Dosage: UNK
     Dates: start: 20070404
  5. PREDNISONE [Concomitant]

REACTIONS (5)
  - DEEP VEIN THROMBOSIS [None]
  - GENERAL PHYSICAL HEALTH DETERIORATION [None]
  - PAIN IN EXTREMITY [None]
  - PAIN [None]
  - EMOTIONAL DISTRESS [None]
